FAERS Safety Report 13121678 (Version 10)
Quarter: 2021Q1

REPORT INFORMATION
  Report Type: Spontaneous
  Country: US (occurrence: US)
  Receive Date: 20170117
  Receipt Date: 20210323
  Transmission Date: 20210419
  Serious: Yes (Hospitalization)
  Sender: FDA-Public Use
  Company Number: US-PFIZER INC-2016484857

PATIENT
  Age: 86 Year
  Sex: Female
  Weight: 96 kg

DRUGS (40)
  1. LEVOTHYROXINE. [Concomitant]
     Active Substance: LEVOTHYROXINE
     Dosage: 20 MG, 1X/DAY
     Dates: start: 2005
  2. OMEPRAZOLE. [Concomitant]
     Active Substance: OMEPRAZOLE
     Dosage: 40 MG, 1X/DAY (IN THE MORNING)
     Route: 048
     Dates: start: 2006
  3. CALTRATE [Concomitant]
     Active Substance: CALCIUM CARBONATE
     Dosage: UNK
  4. AMOXICILLIN. [Concomitant]
     Active Substance: AMOXICILLIN
     Dosage: 2000 MG, UNK (TAKE 4 CAPSULES BY MOUTH 1 HOUR PRIOR TO DENTAL CLEANING OR PROCEDURE)
     Route: 048
  5. LYRICA [Suspect]
     Active Substance: PREGABALIN
     Indication: TYPE 2 DIABETES MELLITUS
     Dosage: 200 MG, 2X/DAY
     Route: 048
     Dates: start: 2006
  6. LISINOPRIL. [Concomitant]
     Active Substance: LISINOPRIL
     Dosage: 5 MG, 1X/DAY
     Route: 048
     Dates: start: 2005
  7. EPIPEN [Concomitant]
     Active Substance: EPINEPHRINE
     Indication: ANAPHYLAXIS TREATMENT
     Dosage: 0.3 MG, UNK (1, AS DIRECTED)
  8. LUCENTIS [Concomitant]
     Active Substance: RANIBIZUMAB
     Dosage: 6 MG/ML, MONTHLY
     Route: 031
     Dates: start: 20151104
  9. SYNTHROID [Concomitant]
     Active Substance: LEVOTHYROXINE SODIUM
     Dosage: 25 UG, 1X/DAY (IN THE MORNING)
     Route: 048
  10. TYLENOL [Concomitant]
     Active Substance: ACETAMINOPHEN
     Indication: PAIN
     Dosage: 1000 MG, AS NEEDED 2 (3 TIMES A DAY)
     Route: 048
  11. VITAMIN D3 [Concomitant]
     Active Substance: CHOLECALCIFEROL
     Dosage: 1000 IU, DAILY
     Route: 048
  12. LUCENTIS [Concomitant]
     Active Substance: RANIBIZUMAB
     Dosage: 6 MG/ML, MONTHLY
     Route: 031
     Dates: start: 20151202
  13. LUCENTIS [Concomitant]
     Active Substance: RANIBIZUMAB
     Dosage: 6 MG/ML, MONTHLY
     Route: 031
     Dates: start: 20160803
  14. NASONEX [Concomitant]
     Active Substance: MOMETASONE FUROATE
     Dosage: 50 UG, 2X/DAY (1 SPRAY EACH NOSTRIL 2 TIMES PER DAY)
  15. LYRICA [Suspect]
     Active Substance: PREGABALIN
     Indication: PARAESTHESIA
     Dosage: 200 MG, 2X/DAY
     Route: 048
  16. METOPROLOL. [Concomitant]
     Active Substance: METOPROLOL
     Indication: BLOOD DISORDER
     Dosage: 12.5 MG, 1X/DAY
     Dates: start: 2016
  17. GLUCOSAMINE [Concomitant]
     Active Substance: GLUCOSAMINE
     Dosage: UNK
  18. CALCIUM + VITAMIN D [Concomitant]
     Active Substance: CALCIUM\VITAMIN D
     Dosage: 1 DF, 2X/DAY [CALCIUM: 1250 MG]/[ COLECALCIFEROL: 200 MG]
     Route: 048
  19. IRON [Concomitant]
     Active Substance: IRON
     Dosage: UNK
  20. GLUCOSAMINE CHONDROITIN [Concomitant]
     Active Substance: CHONDROITIN SULFATE (BOVINE)\GLUCOSAMINE HYDROCHLORIDE
     Dosage: 1 DF, DAILY [CHONDROITIN SULFATE: 500 MG]/[GLUCOSAMINE SULFATE: 400 MG]
     Route: 048
  21. LASIX [Concomitant]
     Active Substance: FUROSEMIDE
     Dosage: 20 MG, AS NEEDED
     Route: 048
  22. TOPROL XL [Concomitant]
     Active Substance: METOPROLOL SUCCINATE
     Dosage: 0.5 DF, 1X/DAY (0.5 TABLET, IN THE EVENING)
     Route: 048
  23. LYRICA [Suspect]
     Active Substance: PREGABALIN
     Indication: NEURALGIA
     Dosage: 200 MG, 2X/DAY (TAKE 1 CAPSULE (200 MG TOTAL) BY MOUTH 2 (TWO) TIMES A DAY)
     Route: 048
  24. XARELTO [Concomitant]
     Active Substance: RIVAROXABAN
     Indication: BLOOD DISORDER
     Dosage: 15 MG, 1X/DAY
     Route: 048
     Dates: start: 2016
  25. VITAMIN C [Concomitant]
     Active Substance: ASCORBIC ACID
     Dosage: 1000 MG, DAILY (AFTER BREAKFAST)
     Route: 048
  26. OCUVITE [Concomitant]
     Active Substance: VITAMINS
     Dosage: 1 DF, DAILY
     Route: 048
  27. COLACE [Concomitant]
     Active Substance: DOCUSATE SODIUM
     Dosage: UNK
  28. B50 [Concomitant]
     Dosage: UNK
  29. CENTRUM SILVER [Concomitant]
     Active Substance: MINERALS\VITAMINS
     Dosage: UNK, DAILY
     Route: 048
  30. LYRICA [Suspect]
     Active Substance: PREGABALIN
     Indication: NEUROPATHY PERIPHERAL
     Dosage: 200 MG, 2X/DAY
     Route: 048
     Dates: start: 20161015, end: 20161019
  31. IMDUR [Concomitant]
     Active Substance: ISOSORBIDE MONONITRATE
     Dosage: 60 MG, 1X/DAY
     Route: 048
     Dates: start: 1992
  32. VITAMIN B12 [Concomitant]
     Active Substance: CYANOCOBALAMIN
     Dosage: 1000 UG/ML, MONTHLY (1 INJECTION PER MONTH)
  33. LUCENTIS [Concomitant]
     Active Substance: RANIBIZUMAB
     Dosage: 6 MG/ML, MONTHLY
     Route: 031
     Dates: start: 20160510
  34. LYRICA [Suspect]
     Active Substance: PREGABALIN
     Indication: DIABETIC NEUROPATHY
     Dosage: 200 MG, 2X/DAY
     Route: 048
     Dates: start: 20190320
  35. LYRICA [Suspect]
     Active Substance: PREGABALIN
     Indication: POLYNEUROPATHY
  36. ASPIRIN. [Concomitant]
     Active Substance: ASPIRIN
     Dosage: 81 MG, DAILY
     Route: 048
  37. FISH OIL [Concomitant]
     Active Substance: FISH OIL
     Dosage: 1000 MG, DAILY
     Route: 048
  38. LUCENTIS [Concomitant]
     Active Substance: RANIBIZUMAB
     Dosage: 6 MG/ML, MONTHLY (1 INJECTION, ONCE A MONTH, RIGHT EYE)
     Route: 031
     Dates: start: 20151007
  39. LUCENTIS [Concomitant]
     Active Substance: RANIBIZUMAB
     Dosage: 6 MG/ML, MONTHLY
     Route: 031
     Dates: start: 20160208
  40. TYLENOL [Concomitant]
     Active Substance: ACETAMINOPHEN
     Indication: PYREXIA

REACTIONS (6)
  - Nausea [Recovered/Resolved]
  - Withdrawal syndrome [Recovered/Resolved]
  - Headache [Recovered/Resolved]
  - Feeling abnormal [Recovered/Resolved]
  - Tremor [Recovered/Resolved]
  - Drug hypersensitivity [Unknown]
